FAERS Safety Report 23195050 (Version 1)
Quarter: 2023Q4

REPORT INFORMATION
  Report Type: Spontaneous
  Country: JP (occurrence: JP)
  Receive Date: 20231117
  Receipt Date: 20231117
  Transmission Date: 20240109
  Serious: Yes (Other)
  Sender: FDA-Public Use
  Company Number: JP-ORPHANEU-2023007991

PATIENT

DRUGS (2)
  1. SIGNIFOR LAR [Suspect]
     Active Substance: PASIREOTIDE PAMOATE
     Indication: Acromegaly
     Dosage: 20 MG MONTHLY
     Route: 030
  2. SEMAGLUTIDE [Concomitant]
     Active Substance: SEMAGLUTIDE
     Indication: Product used for unknown indication
     Dosage: 7 MG DAILY
     Route: 048

REACTIONS (1)
  - Diabetes mellitus [Recovering/Resolving]
